FAERS Safety Report 11465813 (Version 1)
Quarter: 2015Q3

REPORT INFORMATION
  Report Type: Spontaneous
  Country: US (occurrence: US)
  Receive Date: 20150907
  Receipt Date: 20150907
  Transmission Date: 20151125
  Serious: Yes (Other)
  Sender: FDA-Public Use
  Company Number: US-TAKEDA-2014TUS010693

PATIENT

DRUGS (7)
  1. AMARYL [Concomitant]
     Active Substance: GLIMEPIRIDE
     Dosage: 8 MG/DAY
     Dates: start: 200912
  2. BYETTA [Concomitant]
     Active Substance: EXENATIDE
     Dosage: 5-250 MCG, UNK
     Dates: start: 200605, end: 201103
  3. METFORMIN [Concomitant]
     Active Substance: METFORMIN HYDROCHLORIDE
     Dosage: 2000 MG/DAY
     Dates: start: 2004
  4. GLUCOPHAGE [Concomitant]
     Active Substance: METFORMIN HYDROCHLORIDE
     Dosage: 2000 MG/DAY
     Dates: start: 1999, end: 2000
  5. ACTOS [Suspect]
     Active Substance: PIOGLITAZONE HYDROCHLORIDE
     Indication: TYPE 2 DIABETES MELLITUS
     Dosage: 45 MG, UNK
     Route: 048
     Dates: start: 2004, end: 2008
  6. DIABETA                            /00145301/ [Concomitant]
     Dosage: 20 MG, UNK
     Dates: start: 2003, end: 2010
  7. LEVEMIR [Concomitant]
     Active Substance: INSULIN DETEMIR
     Dosage: 25-50 UNITS, BID
     Dates: start: 200912

REACTIONS (1)
  - Bladder cancer [Unknown]

NARRATIVE: CASE EVENT DATE: 20090429
